FAERS Safety Report 25965048 (Version 1)
Quarter: 2025Q4

REPORT INFORMATION
  Report Type: Spontaneous
  Country: US (occurrence: US)
  Receive Date: 20251027
  Receipt Date: 20251027
  Transmission Date: 20260117
  Serious: No
  Sender: ABBVIE
  Company Number: US-ABBVIE-6516154

PATIENT
  Sex: Male

DRUGS (3)
  1. VRAYLAR [Suspect]
     Active Substance: CARIPRAZINE
     Indication: Adjuvant therapy
     Dosage: FORM STRENGTH: 1.5 MG, (CARIPRAZINE HCL 3MG CAP (TBD))
     Route: 048
  2. VRAYLAR [Suspect]
     Active Substance: CARIPRAZINE
     Indication: Adjuvant therapy
     Dosage: FORM STRENGTH: 3 MG (CARIPRAZINE HCL 3MG CAP (TBD))
     Route: 048
  3. BUPROPION [Concomitant]
     Active Substance: BUPROPION
     Indication: Major depression

REACTIONS (2)
  - Painful erection [Unknown]
  - Depression [Unknown]
